FAERS Safety Report 8424363-5 (Version None)
Quarter: 2012Q2

REPORT INFORMATION
  Report Type: 
  Country: None (occurrence: None)
  Receive Date: 20120608
  Receipt Date: 20110816
  Transmission Date: 20120825
  Serious: No
  Sender: FDA-Public Use
  Company Number: US-ASTRAZENECA-2011SE49205

PATIENT
  Age: 57 Year
  Sex: Female

DRUGS (1)
  1. PULMICORT FLEXHALER [Suspect]
     Route: 055

REACTIONS (3)
  - DYSPHONIA [None]
  - WRONG TECHNIQUE IN DRUG USAGE PROCESS [None]
  - OROPHARYNGEAL PAIN [None]
